FAERS Safety Report 7313156-8 (Version None)
Quarter: 2011Q1

REPORT INFORMATION
  Report Type: 
  Country: None (occurrence: None)
  Receive Date: 20110225
  Receipt Date: 20110221
  Transmission Date: 20110831
  Serious: Yes (Hospitalization, Other)
  Sender: FDA-Public Use
  Company Number: PH-ELI_LILLY_AND_COMPANY-PH201010001270

PATIENT
  Age: 63 Year
  Sex: Male
  Weight: 113.38 kg

DRUGS (1)
  1. BYETTA [Suspect]
     Dosage: 10 UG, UNK

REACTIONS (2)
  - RENAL FAILURE CHRONIC [None]
  - BLOOD CREATININE INCREASED [None]
